FAERS Safety Report 18841998 (Version 2)
Quarter: 2021Q1

REPORT INFORMATION
  Report Type: Report from Study
  Country: AU (occurrence: AU)
  Receive Date: 20210203
  Receipt Date: 20210223
  Transmission Date: 20210419
  Serious: Yes (Life-Threatening, Hospitalization, Other)
  Sender: FDA-Public Use
  Company Number: NVSC2021AU016589

PATIENT
  Sex: Male

DRUGS (1)
  1. COSENTYX [Suspect]
     Active Substance: SECUKINUMAB
     Indication: PSORIASIS
     Dosage: UNK UNK, QMO
     Route: 058
     Dates: start: 20160412

REACTIONS (10)
  - Tooth injury [Unknown]
  - Blister [Unknown]
  - Herpes zoster [Unknown]
  - Swollen tongue [Unknown]
  - Infection [Unknown]
  - Tooth infection [Unknown]
  - Ear infection [Unknown]
  - Osteomyelitis [Unknown]
  - Swelling face [Unknown]
  - Rash macular [Unknown]
